FAERS Safety Report 22245625 (Version 2)
Quarter: 2023Q2

REPORT INFORMATION
  Report Type: Spontaneous
  Country: JP (occurrence: JP)
  Receive Date: 20230424
  Receipt Date: 20230601
  Transmission Date: 20230722
  Serious: Yes (Death, Hospitalization, Other)
  Sender: FDA-Public Use
  Company Number: JP-MSD-M2023-09562

PATIENT
  Age: 75 Year
  Sex: Male

DRUGS (3)
  1. KEYTRUDA [Suspect]
     Active Substance: PEMBROLIZUMAB
     Indication: Renal cell carcinoma
     Dosage: 200 MILLIGRAM, Q3W
     Route: 041
     Dates: start: 20220215, end: 20230217
  2. AXITINIB [Concomitant]
     Active Substance: AXITINIB
     Indication: Renal cell carcinoma
     Dosage: 2 MILLIGRAM
     Route: 048
     Dates: start: 20220215
  3. AXITINIB [Concomitant]
     Active Substance: AXITINIB
     Dosage: 2 MILLIGRAM
     Route: 048
     Dates: start: 20230327

REACTIONS (5)
  - Death [Fatal]
  - Hypothyroidism [Not Recovered/Not Resolved]
  - Colitis [Unknown]
  - Feeding disorder [Unknown]
  - Dehydration [Unknown]

NARRATIVE: CASE EVENT DATE: 20230301
